FAERS Safety Report 12299219 (Version 1)
Quarter: 2016Q2

REPORT INFORMATION
  Report Type: Spontaneous
  Country: US (occurrence: None)
  Receive Date: 20160422
  Receipt Date: 20160422
  Transmission Date: 20160815
  Serious: Yes (Hospitalization, Disabling)
  Sender: FDA-Public Use
  Company Number: None

PATIENT
  Age: 40 Year
  Sex: Female
  Weight: 90.27 kg

DRUGS (7)
  1. VITAMIN D [Concomitant]
     Active Substance: CHOLECALCIFEROL
  2. LEVOFLOXACIN. [Suspect]
     Active Substance: LEVOFLOXACIN
     Indication: URINARY TRACT INFECTION
     Route: 048
     Dates: start: 20140829, end: 20140904
  3. GABAPENTIN. [Concomitant]
     Active Substance: GABAPENTIN
  4. KLONOPIN [Concomitant]
     Active Substance: CLONAZEPAM
  5. MULTIPLE VITAMIN [Concomitant]
     Active Substance: VITAMINS
  6. NORCO [Concomitant]
     Active Substance: ACETAMINOPHEN\HYDROCODONE BITARTRATE
  7. VITAMIN B [Concomitant]
     Active Substance: VITAMIN B

REACTIONS (22)
  - Panic disorder [None]
  - Paraesthesia [None]
  - Joint crepitation [None]
  - Diplopia [None]
  - Anxiety [None]
  - Pollakiuria [None]
  - Tendonitis [None]
  - Myalgia [None]
  - Muscle spasms [None]
  - Sleep disorder [None]
  - Contusion [None]
  - Abasia [None]
  - Loss of employment [None]
  - Arthropathy [None]
  - Tachycardia [None]
  - Dysuria [None]
  - Fibromyalgia [None]
  - Osteoarthritis [None]
  - Cystitis interstitial [None]
  - Pain [None]
  - Vision blurred [None]
  - Small fibre neuropathy [None]

NARRATIVE: CASE EVENT DATE: 20140829
